FAERS Safety Report 10168323 (Version 2)
Quarter: 2014Q2

REPORT INFORMATION
  Report Type: Spontaneous
  Country: JP (occurrence: JP)
  Receive Date: 20140512
  Receipt Date: 20140512
  Transmission Date: 20141212
  Serious: Yes (Hospitalization)
  Sender: FDA-Public Use
  Company Number: JP-RANBAXY-2014R1-78769

PATIENT
  Age: 49 Year
  Sex: Male

DRUGS (3)
  1. INDOMETHACIN [Suspect]
     Indication: PERICARDITIS
     Dosage: 50 MG, TID
     Route: 065
  2. IBUPROFEN [Suspect]
     Indication: OSTEOARTHRITIS
     Dosage: 800 MG, DAILY
     Route: 065
  3. SIMVASTATIN [Concomitant]
     Indication: PRODUCT USED FOR UNKNOWN INDICATION
     Dosage: UNK
     Route: 065

REACTIONS (1)
  - Duodenal perforation [Recovering/Resolving]
